FAERS Safety Report 7600272-6 (Version None)
Quarter: 2011Q2

REPORT INFORMATION
  Report Type: 
  Country: None (occurrence: None)
  Receive Date: 20110624
  Receipt Date: 20110525
  Transmission Date: 20111010
  Serious: Yes (Other)
  Sender: FDA-Public Use
  Company Number: ALL1-2011-01622

PATIENT
  Age: 10 Year
  Sex: Male

DRUGS (2)
  1. UNSPECIFIED ANTI-SEIZURE [Concomitant]
  2. INTUNIV [Suspect]
     Indication: PRODUCT USED FOR UNKNOWN INDICATION
     Dosage: 2 MG, 1X/DAY:QD, ORAL : 1 MG, 1X/DAY:QD, ORAL
     Route: 048
     Dates: start: 20110101, end: 20110101

REACTIONS (1)
  - CONVULSION [None]
